FAERS Safety Report 25235253 (Version 1)
Quarter: 2025Q2

REPORT INFORMATION
  Report Type: Spontaneous
  Country: US (occurrence: None)
  Receive Date: 20250423
  Receipt Date: 20250423
  Transmission Date: 20250717
  Serious: Yes (Other)
  Sender: FDA-CTU
  Company Number: None

PATIENT
  Age: 51 Year
  Sex: Female
  Weight: 101.25 kg

DRUGS (2)
  1. REPATHA [Suspect]
     Active Substance: EVOLOCUMAB
     Indication: Blood cholesterol increased
     Route: 058
     Dates: start: 20240823, end: 20250423
  2. LORATADINE [Concomitant]
     Active Substance: LORATADINE

REACTIONS (5)
  - Injection site swelling [None]
  - Injection site nodule [None]
  - Injection site erythema [None]
  - Injection site pruritus [None]
  - Condition aggravated [None]

NARRATIVE: CASE EVENT DATE: 20250423
